FAERS Safety Report 4351031-1 (Version None)
Quarter: 2004Q2

REPORT INFORMATION
  Report Type: 
  Country: None (occurrence: None)
  Receive Date: 20040427
  Receipt Date: 20040415
  Transmission Date: 20050107
  Serious: Yes (Other)
  Sender: FDA-Public Use
  Company Number: PROG00204001135

PATIENT
  Age: 29 Year
  Sex: Female

DRUGS (2)
  1. PROMETRIUM [Suspect]
     Indication: LUTEAL PHASE DEFICIENCY
     Dosage: SEE IMAGE
     Route: 048
     Dates: start: 20040206, end: 20040206
  2. PROMETRIUM [Suspect]
     Indication: LUTEAL PHASE DEFICIENCY
     Dosage: SEE IMAGE
     Route: 048
     Dates: start: 20040207, end: 20040208

REACTIONS (3)
  - BURNING SENSATION [None]
  - FALL [None]
  - SYNCOPE [None]
